FAERS Safety Report 6918972-X (Version None)
Quarter: 2010Q3

REPORT INFORMATION
  Report Type: 
  Country: None (occurrence: None)
  Receive Date: 20100811
  Receipt Date: 20100807
  Transmission Date: 20110219
  Serious: Yes (Hospitalization)
  Sender: FDA-Public Use
  Company Number: US-BRISTOL-MYERS SQUIBB COMPANY-15231848

PATIENT
  Age: 61 Year
  Sex: Male
  Weight: 80 kg

DRUGS (3)
  1. CISPLATIN [Suspect]
     Indication: OESOPHAGEAL ADENOCARCINOMA
     Dosage: DAY 1,8,15,22,29,36;TOTAL DOSE=287.95MG;DOSE(5TH COURSE)=47.75MG;DOSE(6TH COURSE)=38.2MG
     Dates: start: 20100629, end: 20100803
  2. TAXOL [Suspect]
     Indication: OESOPHAGEAL ADENOCARCINOMA
     Dosage: DAY 1,8,15,22,29,36;TOTAL DOSE=575.9MG;DOSE(5TH COURSE)=95.5MG;DOSE(6TH COURSE)=76.4MG
     Dates: start: 20100629, end: 20100727
  3. RADIATION THERAPY [Suspect]
     Indication: OESOPHAGEAL ADENOCARCINOMA
     Dosage: 1DF-50.4GY AT 180CGY/FX DAY 1,8,12,15,19,22,26,29,33,36,38
     Dates: start: 20100629

REACTIONS (3)
  - NAUSEA [None]
  - OESOPHAGEAL PAIN [None]
  - VOMITING [None]
